FAERS Safety Report 19673495 (Version 1)
Quarter: 2021Q3

REPORT INFORMATION
  Report Type: Spontaneous
  Country: US (occurrence: US)
  Receive Date: 20210806
  Receipt Date: 20210806
  Transmission Date: 20211014
  Serious: No
  Sender: FDA-Public Use
  Company Number: None

PATIENT
  Age: 68 Year
  Sex: Female
  Weight: 50 kg

DRUGS (12)
  1. ATORVASTATIN 20MG [Concomitant]
     Active Substance: ATORVASTATIN
  2. VITAMIN D [Concomitant]
     Active Substance: VITAMIN D NOS
  3. CAPECITABINE. [Suspect]
     Active Substance: CAPECITABINE
     Indication: COLON CANCER
     Dosage: ?          OTHER FREQUENCY:BID X 14/21 DAYS;?
     Route: 048
     Dates: start: 20210716
  4. GRANISETRON [Concomitant]
     Active Substance: GRANISETRON
  5. VITAMIN B12 [Concomitant]
     Active Substance: CYANOCOBALAMIN
  6. SERTRALINE 75MG [Concomitant]
     Active Substance: SERTRALINE HYDROCHLORIDE
  7. CAPECITABINE. [Suspect]
     Active Substance: CAPECITABINE
     Indication: COLON CANCER
     Dosage: ?          OTHER FREQUENCY:BID X 14/21 DAYS;?
     Route: 048
     Dates: start: 20210716
  8. OXALIPLATIN. [Concomitant]
     Active Substance: OXALIPLATIN
  9. ONDANSETRON [Concomitant]
     Active Substance: ONDANSETRON
  10. MULTIVITAMIN [Concomitant]
     Active Substance: VITAMINS
  11. PROCHLORPERAZINE. [Concomitant]
     Active Substance: PROCHLORPERAZINE
  12. DEXAMETHASONE SODIUM PHOSPHATE. [Concomitant]
     Active Substance: DEXAMETHASONE SODIUM PHOSPHATE

REACTIONS (2)
  - Nausea [None]
  - Fatigue [None]

NARRATIVE: CASE EVENT DATE: 20210806
